FAERS Safety Report 17287585 (Version 1)
Quarter: 2020Q1

REPORT INFORMATION
  Report Type: Spontaneous
  Country: US (occurrence: US)
  Receive Date: 20191231
  Receipt Date: 20191231
  Transmission Date: 20200409
  Serious: Yes (Hospitalization)
  Sender: FDA-Public Use
  Company Number: None

PATIENT
  Age: 52 Year
  Sex: Male

DRUGS (1)
  1. RIBAVIRIN CAP 200MG [Suspect]
     Active Substance: RIBAVIRIN
     Route: 048
     Dates: start: 201912

REACTIONS (2)
  - Pneumonia respiratory syncytial viral [None]
  - Off label use [None]

NARRATIVE: CASE EVENT DATE: 20191231
